FAERS Safety Report 5285217-9 (Version None)
Quarter: 2007Q2

REPORT INFORMATION
  Report Type: 
  Country: None (occurrence: None)
  Receive Date: 20070403
  Receipt Date: 20070322
  Transmission Date: 20071010
  Serious: Yes (Other)
  Sender: FDA-Public Use
  Company Number: US-PFIZER INC-2007023247

PATIENT
  Sex: Female
  Weight: 59 kg

DRUGS (5)
  1. LYRICA [Suspect]
     Indication: BURNING SENSATION
  2. LOTREL [Concomitant]
  3. CLONAZEPAM [Concomitant]
  4. PERCOCET [Concomitant]
  5. OXYCODONE HCL [Concomitant]

REACTIONS (10)
  - ARTHRALGIA [None]
  - BACK PAIN [None]
  - BURNING SENSATION [None]
  - DRUG INEFFECTIVE [None]
  - FEELING ABNORMAL [None]
  - JOINT INJURY [None]
  - MUSCULOSKELETAL DISCOMFORT [None]
  - SOMNOLENCE [None]
  - SURGERY [None]
  - TEARFULNESS [None]
